FAERS Safety Report 17581681 (Version 1)
Quarter: 2020Q1

REPORT INFORMATION
  Report Type: Spontaneous
  Country: US (occurrence: US)
  Receive Date: 20200324
  Receipt Date: 20200324
  Transmission Date: 20200409
  Serious: Yes (Hospitalization, Other)
  Sender: FDA-Public Use
  Company Number: None

PATIENT
  Age: 49 Year
  Sex: Male

DRUGS (21)
  1. AMOX/K CLAV [Concomitant]
     Active Substance: AMOXICILLIN\CLAVULANATE POTASSIUM
  2. DICLOFENAC SOL [Concomitant]
  3. MODAFINIL. [Concomitant]
     Active Substance: MODAFINIL
  4. TESTOST [Concomitant]
  5. OXYCODONE [Concomitant]
     Active Substance: OXYCODONE
  6. AFREZZA [Concomitant]
     Active Substance: INSULIN HUMAN
  7. REPATHA [Concomitant]
     Active Substance: EVOLOCUMAB
  8. VICTOZA [Concomitant]
     Active Substance: LIRAGLUTIDE
  9. LATUDA [Concomitant]
     Active Substance: LURASIDONE HYDROCHLORIDE
  10. A-HYDROCORT [Concomitant]
     Active Substance: HYDROCORTISONE SODIUM SUCCINATE
  11. COSENTYX [Suspect]
     Active Substance: SECUKINUMAB
     Indication: ANKYLOSING SPONDYLITIS
     Dosage: ?          OTHER FREQUENCY:EVERY 28 DAYS;?
     Route: 058
     Dates: start: 20191030
  12. CORNALOR [Concomitant]
  13. LAMOTRIGINE. [Concomitant]
     Active Substance: LAMOTRIGINE
  14. LIDO/PRILOCN [Concomitant]
  15. OXYCODONE AND ACETAMINOPHEN [Concomitant]
     Active Substance: ACETAMINOPHEN\OXYCODONE HYDROCHLORIDE
  16. CLONAZEPAM. [Concomitant]
     Active Substance: CLONAZEPAM
  17. ESOMEPRA MAG [Concomitant]
  18. SYNTHROID [Concomitant]
     Active Substance: LEVOTHYROXINE SODIUM
  19. ROSUVASTATIN. [Concomitant]
     Active Substance: ROSUVASTATIN
  20. LOSARTAN POT [Concomitant]
     Active Substance: LOSARTAN POTASSIUM
  21. TOUJEO [Concomitant]
     Active Substance: INSULIN GLARGINE

REACTIONS (1)
  - Myocardial infarction [None]

NARRATIVE: CASE EVENT DATE: 20200311
